FAERS Safety Report 8442751-8 (Version None)
Quarter: 2012Q2

REPORT INFORMATION
  Report Type: 
  Country: None (occurrence: None)
  Receive Date: 20120615
  Receipt Date: 20120608
  Transmission Date: 20120825
  Serious: Yes (Hospitalization)
  Sender: FDA-Public Use
  Company Number: GB-ROCHE-1076479

PATIENT
  Age: 41 Year
  Sex: Female

DRUGS (3)
  1. FERROUS SULFATE TAB [Concomitant]
     Route: 065
  2. CEFTRIAXONE [Suspect]
     Indication: PRODUCT USED FOR UNKNOWN INDICATION
     Route: 042
     Dates: start: 20120504
  3. COTRIM [Suspect]
     Indication: PNEUMOCYSTIS JIROVECI PNEUMONIA
     Route: 042
     Dates: start: 20120504

REACTIONS (3)
  - CONFUSIONAL STATE [None]
  - AGGRESSION [None]
  - ACUTE PSYCHOSIS [None]
